FAERS Safety Report 5909542-0 (Version None)
Quarter: 2008Q4

REPORT INFORMATION
  Report Type: 
  Country: None (occurrence: None)
  Receive Date: 20081002
  Receipt Date: 20080917
  Transmission Date: 20090506
  Serious: Yes (Life-Threatening, Hospitalization)
  Sender: FDA-Public Use
  Company Number: 2008BI024241

PATIENT
  Age: 37 Year
  Sex: Female

DRUGS (4)
  1. TYSABRI [Suspect]
     Indication: MULTIPLE SCLEROSIS
     Dosage: 300 MG; QM; IV
     Route: 042
     Dates: start: 20080812, end: 20080812
  2. AVONEX (PREV.) [Concomitant]
  3. COPAXONE (PREV.) [Concomitant]
  4. REBIF (PREV.) [Concomitant]

REACTIONS (5)
  - ANGIOEDEMA [None]
  - DYSPNOEA [None]
  - HEPATIC PAIN [None]
  - HYPERTHERMIA [None]
  - URTICARIA [None]
